FAERS Safety Report 18532771 (Version 1)
Quarter: 2020Q4

REPORT INFORMATION
  Report Type: Spontaneous
  Country: US (occurrence: US)
  Receive Date: 20201120
  Receipt Date: 20201120
  Transmission Date: 20210114
  Serious: Yes (Hospitalization, Other)
  Sender: FDA-Public Use
  Company Number: None

PATIENT
  Age: 61 Year
  Sex: Female

DRUGS (17)
  1. GABAPENTIN. [Concomitant]
     Active Substance: GABAPENTIN
  2. ATORVASTATIN [Concomitant]
     Active Substance: ATORVASTATIN
  3. SMZ/TMP DS [Concomitant]
     Active Substance: SULFAMETHOXAZOLE\TRIMETHOPRIM
  4. HUMIRA [Suspect]
     Active Substance: ADALIMUMAB
     Indication: RHEUMATOID ARTHRITIS
     Dosage: ?          OTHER FREQUENCY:EVERY 2 WEEKS;?
     Route: 058
     Dates: start: 20180927
  5. TB SYRNG [Concomitant]
  6. PANTOPRAZOLE [Concomitant]
     Active Substance: PANTOPRAZOLE
  7. CLOBETASOL [Concomitant]
     Active Substance: CLOBETASOL
  8. HYDROMORPHON [Concomitant]
     Active Substance: HYDROMORPHONE
  9. ESTRADIOL. [Concomitant]
     Active Substance: ESTRADIOL
  10. FOLIC ACID. [Concomitant]
     Active Substance: FOLIC ACID
  11. KETOCONAZOLE SHA [Concomitant]
  12. BACLOFEN. [Concomitant]
     Active Substance: BACLOFEN
  13. LOSARTAN POT [Concomitant]
     Active Substance: LOSARTAN POTASSIUM
  14. OXYCODONE [Concomitant]
     Active Substance: OXYCODONE
  15. KETOCONAZOLE CRE [Concomitant]
  16. MUPIROCIN. [Concomitant]
     Active Substance: MUPIROCIN
  17. IBUPROFEN. [Concomitant]
     Active Substance: IBUPROFEN

REACTIONS (2)
  - Neck surgery [None]
  - Therapy interrupted [None]
